FAERS Safety Report 24607800 (Version 1)
Quarter: 2024Q4

REPORT INFORMATION
  Report Type: Spontaneous
  Country: US (occurrence: None)
  Receive Date: 20241111
  Receipt Date: 20241111
  Transmission Date: 20250115
  Serious: Yes (Hospitalization)
  Sender: Public
  Company Number: None

PATIENT
  Sex: Male

DRUGS (5)
  1. EVEROLIMUS [Suspect]
     Active Substance: EVEROLIMUS
     Indication: Tuberous sclerosis complex
     Dosage: FREQUENCY : DAILY;?
     Route: 048
  2. EPIDIOLEX [Concomitant]
     Active Substance: CANNABIDIOL
  3. FYCOMPA [Concomitant]
     Active Substance: PERAMPANEL
  4. ZOMACTON [Concomitant]
     Active Substance: SOMATROPIN
  5. LACOSAMIDE [Concomitant]
     Active Substance: LACOSAMIDE

REACTIONS (4)
  - Pneumonia [None]
  - Therapy cessation [None]
  - Adverse drug reaction [None]
  - Pneumonitis [None]
